FAERS Safety Report 9669873 (Version 2)
Quarter: 2013Q4

REPORT INFORMATION
  Report Type: Report from Study
  Country: MX (occurrence: MX)
  Receive Date: 20131105
  Receipt Date: 20131105
  Transmission Date: 20140711
  Serious: Yes (Other)
  Sender: FDA-Public Use
  Company Number: PHHY2012MX070000

PATIENT
  Age: 62 Year
  Sex: Female

DRUGS (6)
  1. DIOVAN [Suspect]
     Indication: HYPERTENSION
     Dosage: 1 DF (160MG), DAILY
     Route: 048
     Dates: start: 20100610
  2. DIOVAN [Suspect]
     Dosage: 0.5 DF (160MG), DAILY
     Route: 048
  3. CO-DIOVAN [Suspect]
     Indication: HYPERTENSION
  4. CRESTOR [Concomitant]
     Dosage: 1 DF DAILY
  5. GLUCOSAMINE [Concomitant]
     Dosage: 2 UKN, DAILY
  6. HYDROLYZED COLLAGEN [Concomitant]
     Dosage: 1 DF (ONE PACKET), DAILY

REACTIONS (8)
  - Spinal column injury [Not Recovered/Not Resolved]
  - Cartilage injury [Not Recovered/Not Resolved]
  - Fall [Recovered/Resolved]
  - Gait disturbance [Not Recovered/Not Resolved]
  - Weight loss poor [Unknown]
  - Feeling abnormal [Unknown]
  - Blood pressure decreased [Recovered/Resolved]
  - Wrong technique in drug usage process [Not Recovered/Not Resolved]
